FAERS Safety Report 6980825-9 (Version None)
Quarter: 2010Q3

REPORT INFORMATION
  Report Type: 
  Country: None (occurrence: None)
  Receive Date: 20100909
  Receipt Date: 20100825
  Transmission Date: 20110219
  Serious: Yes (Other)
  Sender: FDA-Public Use
  Company Number: 010909

PATIENT
  Sex: Male

DRUGS (6)
  1. BUSULFEX [Suspect]
     Indication: STEM CELL TRANSPLANT
     Dosage: 3.2 MG/KG, DAILY DOSE, INTRAVENOUS
     Route: 042
  2. FLUDARABINE [Concomitant]
  3. ALEMTUZUMAB [Concomitant]
  4. CYCLOSPORINE [Concomitant]
  5. GRANULOCYTE COLONY STIMULATING FACTOR [Concomitant]
  6. PREDNISOLONE [Concomitant]

REACTIONS (2)
  - ACUTE MYELOID LEUKAEMIA RECURRENT [None]
  - GRAFT VERSUS HOST DISEASE [None]
